FAERS Safety Report 23688774 (Version 1)
Quarter: 2024Q1

REPORT INFORMATION
  Report Type: Spontaneous
  Country: CN (occurrence: CN)
  Receive Date: 20240329
  Receipt Date: 20240329
  Transmission Date: 20240410
  Serious: Yes (Hospitalization)
  Sender: FDA-Public Use
  Company Number: CN-002147023-NVSC2024CN067976

PATIENT
  Age: 44 Year
  Sex: Male

DRUGS (1)
  1. CARBAMAZEPINE [Suspect]
     Active Substance: CARBAMAZEPINE
     Indication: Epilepsy
     Dosage: 400 MG, TID
     Route: 048
     Dates: start: 20240307, end: 20240319

REACTIONS (2)
  - Rash [Recovering/Resolving]
  - Acne [Unknown]

NARRATIVE: CASE EVENT DATE: 20240311
